FAERS Safety Report 5068808-X (Version None)
Quarter: 2006Q3

REPORT INFORMATION
  Report Type: 
  Country: None (occurrence: None)
  Receive Date: 20060802
  Receipt Date: 20060411
  Transmission Date: 20061208
  Serious: Yes (Hospitalization)
  Sender: FDA-Public Use
  Company Number: US-BRISTOL-MYERS SQUIBB COMPANY-13343108

PATIENT
  Age: 73 Year
  Sex: Male
  Weight: 86 kg

DRUGS (9)
  1. COUMADIN [Suspect]
     Dosage: DOSE:  5MG ON TUESDAYS AND FRIDAYS; 2.5 MILLIGRAMS ^ALL OTHER DAYS^
  2. COUMADIN [Suspect]
  3. PLAVIX [Suspect]
     Dates: start: 20060201
  4. ASPIRIN [Concomitant]
     Dates: start: 20060201
  5. LOPRESSOR [Concomitant]
  6. DIGITEK [Concomitant]
  7. FLOMAX [Concomitant]
  8. LIPITOR [Concomitant]
  9. OMEGA-3 [Concomitant]

REACTIONS (3)
  - EPISTAXIS [None]
  - FATIGUE [None]
  - MYOCARDIAL INFARCTION [None]
